FAERS Safety Report 14154617 (Version 2)
Quarter: 2017Q4

REPORT INFORMATION
  Report Type: Spontaneous
  Country: US (occurrence: US)
  Receive Date: 20171102
  Receipt Date: 20171122
  Transmission Date: 20180321
  Serious: No
  Sender: FDA-Public Use
  Company Number: US-ACTELION-A-NJ2017-161819

PATIENT
  Age: 56 Year
  Sex: Female
  Weight: 106.58 kg

DRUGS (3)
  1. ADCIRCA [Concomitant]
     Active Substance: TADALAFIL
  2. OPSUMIT [Suspect]
     Active Substance: MACITENTAN
     Indication: PULMONARY ARTERIAL HYPERTENSION
     Dosage: 10 MG, UNK
     Route: 048
  3. REMODULIN [Concomitant]
     Active Substance: TREPROSTINIL

REACTIONS (6)
  - Weight increased [Unknown]
  - Cardiac failure [Unknown]
  - Malaise [Unknown]
  - Burning sensation [Unknown]
  - Fatigue [Unknown]
  - Peripheral swelling [Unknown]
